FAERS Safety Report 6199687-5 (Version None)
Quarter: 2009Q2

REPORT INFORMATION
  Report Type: 
  Country: None (occurrence: None)
  Receive Date: 20090522
  Receipt Date: 20070924
  Transmission Date: 20091009
  Serious: Yes (Hospitalization)
  Sender: FDA-Public Use
  Company Number: US-ALEXION-A200700033

PATIENT
  Sex: Female
  Weight: 113.38 kg

DRUGS (24)
  1. SOLIRIS [Suspect]
     Indication: PAROXYSMAL NOCTURNAL HAEMOGLOBINURIA
     Dosage: 600 MG, SINGLE
     Route: 042
     Dates: start: 20070529, end: 20070529
  2. SOLIRIS [Suspect]
     Dosage: 600 MG, SINGLE
     Route: 042
     Dates: start: 20070605, end: 20070605
  3. SOLIRIS [Suspect]
     Dosage: 600 MG, SINGLE
     Route: 042
     Dates: start: 20070612, end: 20070612
  4. SOLIRIS [Suspect]
     Dosage: 600 MG, SINGLE
     Route: 042
     Dates: start: 20070619, end: 20070619
  5. SOLIRIS [Suspect]
     Dosage: 900 MG, SINGLE
     Route: 042
     Dates: start: 20070626, end: 20070626
  6. SOLIRIS [Suspect]
     Dosage: 900 MG, SINGLE
     Route: 042
     Dates: start: 20070710, end: 20070710
  7. SOLIRIS [Suspect]
     Dosage: 900 MG, SINGLE
     Route: 042
     Dates: start: 20070723, end: 20070723
  8. SOLIRIS [Suspect]
     Dosage: 900 MG, SINGLE
     Route: 042
     Dates: start: 20070806, end: 20070806
  9. SOLIRIS [Suspect]
     Dosage: 900 MG, SINGLE
     Route: 042
     Dates: start: 20070820, end: 20070820
  10. SOLIRIS [Suspect]
     Dosage: 900 MG, SINGLE
     Route: 042
     Dates: start: 20070904, end: 20070904
  11. SOLIRIS [Suspect]
     Dosage: 900 MG, SINGLE
     Route: 042
     Dates: start: 20070918, end: 20070918
  12. PREDNISONE [Concomitant]
     Dosage: UNK, QD
     Route: 048
  13. PREDNISONE [Concomitant]
     Dosage: 3 MG, QD
     Dates: start: 20070723
  14. FOLIC ACID [Concomitant]
     Indication: PAROXYSMAL NOCTURNAL HAEMOGLOBINURIA
     Dosage: UNK, QD
     Route: 048
  15. ATENOLOL [Concomitant]
     Indication: HYPERTENSION
     Dosage: UNK, QD
     Route: 048
  16. MOEXIPRIL HYDROCHLORIDE [Concomitant]
     Indication: HYPERTENSION
     Dosage: UNK, QD
     Route: 048
  17. HYDROCHLOROTHIAZIDE [Concomitant]
     Dosage: UNK, QD
     Route: 048
  18. GLYBURIDE [Concomitant]
     Indication: DIABETES MELLITUS
     Dosage: 25 MG, BID
     Route: 048
  19. GLYBURIDE [Concomitant]
     Dosage: 500 MG, BID
     Route: 048
  20. LEVOXYL [Concomitant]
     Indication: HYPOTHYROIDISM
     Dosage: .15 MG, QD
     Route: 048
  21. PROTONIX                           /01263201/ [Concomitant]
     Indication: DYSPEPSIA
     Dosage: UNK, QD
     Route: 048
  22. POTASSIUM CHLORIDE [Concomitant]
     Dosage: 6 TABLETS, QD
     Route: 048
  23. MULTIVITAMIN                       /00831701/ [Concomitant]
  24. CALTRATE + D                       /00944201/ [Concomitant]
     Dosage: 2 TABLETS, QD
     Route: 048

REACTIONS (4)
  - DYSPNOEA [None]
  - NEPHROLITHIASIS [None]
  - PAIN [None]
  - RESTLESSNESS [None]
